FAERS Safety Report 7870624-8 (Version None)
Quarter: 2011Q4

REPORT INFORMATION
  Report Type: 
  Country: None (occurrence: None)
  Receive Date: 20111029
  Receipt Date: 20110218
  Transmission Date: 20120403
  Serious: Yes (Other)
  Sender: FDA-Public Use
  Company Number: US-AMGEN-USASP2011009910

PATIENT
  Age: 58 Year
  Sex: Female

DRUGS (1)
  1. ENBREL [Suspect]
     Indication: RHEUMATOID ARTHRITIS
     Dosage: 50 MG, QWK
     Dates: start: 20100301, end: 20110205

REACTIONS (6)
  - BACK PAIN [None]
  - WEIGHT INCREASED [None]
  - UMBILICAL HERNIA [None]
  - ERYTHEMA [None]
  - HEPATITIS C [None]
  - RHEUMATOID ARTHRITIS [None]
